FAERS Safety Report 15604976 (Version 1)
Quarter: 2018Q4

REPORT INFORMATION
  Report Type: Spontaneous
  Country: US (occurrence: US)
  Receive Date: 20181112
  Receipt Date: 20181112
  Transmission Date: 20190205
  Serious: No
  Sender: FDA-Public Use
  Company Number: US-AMGEN-USASP2018158306

PATIENT
  Age: 56 Year
  Sex: Female

DRUGS (3)
  1. AIMOVIG [Suspect]
     Active Substance: ERENUMAB-AOOE
     Indication: MIGRAINE
     Dosage: 140 MG, QMO
     Route: 065
     Dates: start: 20181003
  2. AIMOVIG [Suspect]
     Active Substance: ERENUMAB-AOOE
     Dosage: 140 MG, QMO
     Route: 065
  3. AIMOVIG [Suspect]
     Active Substance: ERENUMAB-AOOE
     Dosage: 140 MG, QMO
     Route: 065

REACTIONS (6)
  - Injection site erythema [Unknown]
  - Wrong technique in product usage process [Unknown]
  - Injection site swelling [Unknown]
  - Injection site urticaria [Unknown]
  - Injection site pruritus [Unknown]
  - Injection site induration [Unknown]

NARRATIVE: CASE EVENT DATE: 20181003
